FAERS Safety Report 11349373 (Version 2)
Quarter: 2015Q3

REPORT INFORMATION
  Report Type: Spontaneous
  Country: US (occurrence: US)
  Receive Date: 20150807
  Receipt Date: 20150811
  Transmission Date: 20151125
  Serious: No
  Sender: FDA-Public Use
  Company Number: US-009507513-1507USA014265

PATIENT
  Age: 21 Year
  Sex: Female
  Weight: 68.27 kg

DRUGS (2)
  1. NEXPLANON [Suspect]
     Active Substance: ETONOGESTREL
     Indication: MENSTRUAL CYCLE MANAGEMENT
     Dosage: 1 ROD,EVERY 3 YEARS, INSERTED IN LEFT ARM
     Route: 059
     Dates: start: 201502
  2. NEXPLANON [Suspect]
     Active Substance: ETONOGESTREL
     Indication: ANAEMIA

REACTIONS (4)
  - Unintended pregnancy [Unknown]
  - Menstruation irregular [Unknown]
  - Drug administration error [Unknown]
  - Nausea [Unknown]

NARRATIVE: CASE EVENT DATE: 2015
